FAERS Safety Report 4687284-X (Version None)
Quarter: 2005Q2

REPORT INFORMATION
  Report Type: 
  Country: None (occurrence: None)
  Receive Date: 20050608
  Receipt Date: 20050526
  Transmission Date: 20051028
  Serious: Yes (Other)
  Sender: FDA-Public Use
  Company Number: 2005081121

PATIENT
  Sex: Female
  Weight: 65.7716 kg

DRUGS (8)
  1. CELEBREX [Suspect]
     Indication: ARTHRITIS
     Dosage: 200 MG (200 MG, 1 IN 1 D), ORAL
     Route: 048
     Dates: start: 20000101
  2. ASPIRIN [Concomitant]
  3. NORVASC [Concomitant]
  4. TOPROL (METOPROLOL) [Concomitant]
  5. ACCUPRIL [Concomitant]
  6. DETROL [Concomitant]
  7. ZOCOR [Concomitant]
  8. PLAVIX [Concomitant]

REACTIONS (3)
  - DRUG INEFFECTIVE [None]
  - HIP FRACTURE [None]
  - SKIN DISCOLOURATION [None]
